FAERS Safety Report 7553856-8 (Version None)
Quarter: 2011Q2

REPORT INFORMATION
  Report Type: 
  Country: None (occurrence: None)
  Receive Date: 20110617
  Receipt Date: 20110615
  Transmission Date: 20111010
  Serious: Yes (Other)
  Sender: FDA-Public Use
  Company Number: CH-BRISTOL-MYERS SQUIBB COMPANY-15835176

PATIENT
  Age: 72 Year
  Sex: Female

DRUGS (9)
  1. REMERON [Concomitant]
     Indication: ANXIETY
     Dosage: SINCE }ONE YEAR
     Route: 048
  2. SINTROM [Concomitant]
     Indication: PULMONARY EMBOLISM
     Dosage: DOSE ACCORDING INR
     Route: 048
     Dates: start: 20100901
  3. OMEPRAZOLE [Concomitant]
     Dosage: PROLONGED DURATION,YEARS
     Route: 048
  4. ATENOLOL [Suspect]
     Indication: ESSENTIAL HYPERTENSION
     Dosage: REINTRODUCTION SICE AT LEAST SEP10, RECEIVED IN THE PAST,MONTHS
     Route: 048
  5. BONIVA [Concomitant]
     Indication: OSTEOPOROSIS
     Route: 041
     Dates: start: 20090401
  6. ORENCIA [Suspect]
     Indication: RHEUMATOID ARTHRITIS
     Dosage: 1 DF :1 INJ,FOR MORE THAN 6 MONTHS
     Route: 041
     Dates: start: 20110201
  7. COZAAR [Concomitant]
     Indication: ESSENTIAL HYPERTENSION
     Dosage: YEARS
     Route: 048
  8. METHOTREXATE SODIUM [Concomitant]
     Indication: RHEUMATOID ARTHRITIS
     Dosage: 15MG-20MG,SINCE SEVERAL YEARS
     Route: 058
     Dates: start: 20050101
  9. REMERON [Concomitant]
     Indication: DEPRESSION
     Dosage: SINCE }ONE YEAR
     Route: 048

REACTIONS (3)
  - ASTHENIA [None]
  - ANXIETY [None]
  - DEPRESSION [None]
